FAERS Safety Report 6686885-7 (Version None)
Quarter: 2010Q2

REPORT INFORMATION
  Report Type: 
  Country: None (occurrence: None)
  Receive Date: 20100416
  Receipt Date: 20100416
  Transmission Date: 20101027
  Serious: Yes (Other)
  Sender: FDA-Public Use
  Company Number: None

PATIENT
  Sex: Female
  Weight: 131.5431 kg

DRUGS (2)
  1. BACTRIM DS [Suspect]
     Indication: INFECTED CYST
     Dosage: X 2 DAILY ORAL
     Route: 048
     Dates: start: 20090901, end: 20090903
  2. BACTRIM DS [Suspect]
     Indication: CYSTITIS
     Dosage: X 2 DAILY ORAL
     Route: 048
     Dates: start: 20100401, end: 20100402

REACTIONS (2)
  - BLISTER [None]
  - ERYTHEMA [None]
